FAERS Safety Report 4826883-9 (Version None)
Quarter: 2005Q4

REPORT INFORMATION
  Report Type: 
  Country: None (occurrence: None)
  Receive Date: 20051114
  Receipt Date: 20051109
  Transmission Date: 20060501
  Serious: Yes (Hospitalization)
  Sender: FDA-Public Use
  Company Number: GB-BOEHRINGER INGELHEIM PHARMACEUTICALS, INC.-2005-UK-02287UK

PATIENT
  Age: 70 Year
  Sex: Female

DRUGS (6)
  1. MICARDIS [Suspect]
     Indication: HYPERTENSION
     Route: 048
     Dates: end: 20051025
  2. DICLOFENAC [Suspect]
     Indication: PAIN
     Dosage: 25 MG TWICE DAILY
     Route: 048
     Dates: start: 20051018, end: 20051025
  3. BENDROFLUAZIDE [Concomitant]
     Dosage: 2.5 MG
     Route: 048
  4. GABAPENTIN [Concomitant]
     Dosage: 300 MG ONCE DAILY
     Route: 048
  5. MS CONTIN [Concomitant]
     Dosage: 20MG + 30MG
     Route: 048
  6. FELODIPINE [Concomitant]
     Dosage: 2.5 MG ONCE DAILY
     Route: 048

REACTIONS (1)
  - RENAL FAILURE ACUTE [None]
